FAERS Safety Report 8434267-X (Version None)
Quarter: 2012Q2

REPORT INFORMATION
  Report Type: 
  Country: None (occurrence: None)
  Receive Date: 20120613
  Receipt Date: 20120601
  Transmission Date: 20120825
  Serious: No
  Sender: FDA-Public Use
  Company Number: US-ASTRAZENECA-2012SE37223

PATIENT
  Age: 52 Year
  Sex: Female

DRUGS (4)
  1. TOPROL-XL [Suspect]
     Route: 048
  2. DOXYCYCLINE [Concomitant]
  3. NEXIUM [Suspect]
     Route: 048
  4. CIPROFLOXACIN [Concomitant]

REACTIONS (3)
  - AGEUSIA [None]
  - EAR INFECTION [None]
  - ANOSMIA [None]
